FAERS Safety Report 9116979 (Version 1)
Quarter: 2013Q1

REPORT INFORMATION
  Report Type: Spontaneous
  Country: US (occurrence: US)
  Receive Date: 20130225
  Receipt Date: 20130225
  Transmission Date: 20140127
  Serious: No
  Sender: FDA-Public Use
  Company Number: US-PFIZER INC-2013067712

PATIENT
  Sex: Male

DRUGS (2)
  1. LYRICA [Suspect]
     Indication: DIABETIC NEUROPATHY
     Dosage: 75 MG, 1X/DAY
     Route: 048
  2. METFORMIN HYDROCHLORIDE [Concomitant]
     Dosage: UNK

REACTIONS (1)
  - Vision blurred [Not Recovered/Not Resolved]
